FAERS Safety Report 23760077 (Version 1)
Quarter: 2024Q2

REPORT INFORMATION
  Report Type: Spontaneous
  Country: CA (occurrence: CA)
  Receive Date: 20240419
  Receipt Date: 20240419
  Transmission Date: 20240715
  Serious: Yes (Other)
  Sender: FDA-Public Use
  Company Number: None

PATIENT
  Age: 14 Year
  Sex: Male

DRUGS (4)
  1. NORDITROPIN [Suspect]
     Active Substance: SOMATROPIN
     Indication: Growth hormone deficiency
     Dosage: 1 DOSAGE FORM EVERY 1 DAYS
  2. NORDITROPIN [Suspect]
     Active Substance: SOMATROPIN
     Dosage: 1 DOSAGE FORMS
     Route: 058
  3. NORDITROPIN [Suspect]
     Active Substance: SOMATROPIN
     Dosage: 1 MILLIGRAM
  4. NORDITROPIN [Suspect]
     Active Substance: SOMATROPIN
     Dosage: 1.0 MILLIGRAM
     Route: 058

REACTIONS (3)
  - Brain neoplasm malignant [Unknown]
  - Recurrent cancer [Unknown]
  - Product prescribing error [Unknown]
